FAERS Safety Report 14583994 (Version 6)
Quarter: 2019Q3

REPORT INFORMATION
  Report Type: Spontaneous
  Country: CA (occurrence: CA)
  Receive Date: 20180228
  Receipt Date: 20190918
  Transmission Date: 20191004
  Serious: Yes (Other)
  Sender: FDA-Public Use
  Company Number: CA-PFIZER INC-2017174543

PATIENT
  Age: 76 Year
  Sex: Male
  Weight: 70 kg

DRUGS (10)
  1. LIPITOR [Concomitant]
     Active Substance: ATORVASTATIN CALCIUM
     Dosage: 40 MG, 1X/DAY
     Route: 048
  2. JANUMET [Concomitant]
     Active Substance: METFORMIN HYDROCHLORIDE\SITAGLIPTIN PHOSPHATE
     Dosage: 1 DF (500/1000), 2X/DAY
     Route: 048
  3. SOMAVERT [Suspect]
     Active Substance: PEGVISOMANT
     Indication: ACROMEGALY
     Dosage: 20 MG, 1X/DAY
     Route: 058
     Dates: start: 201504, end: 2018
  4. AMLODIPINE [Concomitant]
     Active Substance: AMLODIPINE BESYLATE
     Dosage: 10 MG, 1X/DAY
     Route: 048
  5. SOMAVERT [Suspect]
     Active Substance: PEGVISOMANT
     Dosage: 15 MG, UNK
     Route: 058
     Dates: start: 2018
  6. ATENOLOL. [Concomitant]
     Active Substance: ATENOLOL
     Dosage: 12.5 MG, UNK
     Route: 048
  7. ANDROGEL [Concomitant]
     Active Substance: TESTOSTERONE
     Dosage: 5 G (1%), 1X/DAY
  8. GLICLAZIDE MR STADA [Concomitant]
     Dosage: 90 MG, UNK
     Route: 048
  9. COVERSYL /00790702/ [Concomitant]
     Active Substance: PERINDOPRIL
     Dosage: 8 MG, 1X/DAY
     Route: 048
  10. JANUMET [Concomitant]
     Active Substance: METFORMIN HYDROCHLORIDE\SITAGLIPTIN PHOSPHATE
     Dosage: 50/500 MG, 2X/DAY
     Route: 048

REACTIONS (11)
  - Product complaint [Unknown]
  - Hyperhidrosis [Unknown]
  - Neoplasm progression [Unknown]
  - Injection site pain [Unknown]
  - Blood testosterone decreased [Unknown]
  - Blood gonadotrophin decreased [Unknown]
  - Weight decreased [Unknown]
  - Oedema peripheral [Unknown]
  - Hyperkeratosis [Unknown]
  - Incorrect dose administered [Unknown]
  - Snoring [Unknown]

NARRATIVE: CASE EVENT DATE: 20170501
